FAERS Safety Report 19628210 (Version 1)
Quarter: 2021Q3

REPORT INFORMATION
  Report Type: Spontaneous
  Country: US (occurrence: US)
  Receive Date: 20210728
  Receipt Date: 20210728
  Transmission Date: 20211014
  Serious: No
  Sender: FDA-Public Use
  Company Number: US-PFIZER INC-2021810738

PATIENT
  Age: 95 Year
  Sex: Female
  Weight: 43.1 kg

DRUGS (6)
  1. ATROPINE. [Interacting]
     Active Substance: ATROPINE
     Dosage: UNK
  2. LATANOPROST. [Suspect]
     Active Substance: LATANOPROST
     Dosage: UNK
  3. AMLODIPINE [Concomitant]
     Active Substance: AMLODIPINE BESYLATE
     Indication: HYPERTENSION
     Dosage: UNK
  4. PIMINODINE. [Interacting]
     Active Substance: PIMINODINE
     Dosage: UNK
  5. TRAVATAN [Interacting]
     Active Substance: TRAVOPROST
     Dosage: UNK
  6. LOTEMAX [Interacting]
     Active Substance: LOTEPREDNOL ETABONATE
     Dosage: UNK

REACTIONS (4)
  - Drug interaction [Unknown]
  - Body height decreased [Unknown]
  - Visual impairment [Unknown]
  - Eye pain [Unknown]
